FAERS Safety Report 5482727-6 (Version None)
Quarter: 2007Q4

REPORT INFORMATION
  Report Type: 
  Country: None (occurrence: None)
  Receive Date: 20071011
  Receipt Date: 20070928
  Transmission Date: 20080405
  Serious: Yes (Hospitalization)
  Sender: FDA-Public Use
  Company Number: AU-PFIZER INC-2007081801

PATIENT
  Sex: Male
  Weight: 83 kg

DRUGS (13)
  1. SU-011,248 [Suspect]
     Indication: GASTROINTESTINAL STROMAL TUMOUR
     Route: 048
     Dates: start: 20060304, end: 20060627
  2. SU-011,248 [Suspect]
     Route: 048
  3. ENALAPRIL MALEATE [Concomitant]
     Route: 048
  4. RABEPRAZOLE SODIUM [Concomitant]
     Route: 048
  5. CITRACAL [Concomitant]
     Route: 048
  6. COLOXYL WITH SENNA [Concomitant]
     Route: 048
  7. METOCLOPRAMIDE [Concomitant]
     Route: 048
  8. ENDONE [Concomitant]
     Route: 048
  9. OSTELIN [Concomitant]
     Route: 048
  10. SYMBICORT [Concomitant]
     Indication: OBSTRUCTIVE AIRWAYS DISORDER
     Route: 055
  11. PARACETAMOL [Concomitant]
     Route: 048
  12. CEFACLOR [Concomitant]
     Indication: LOWER RESPIRATORY TRACT INFECTION
     Route: 048
  13. BIAXSIG [Concomitant]
     Indication: LOWER RESPIRATORY TRACT INFECTION
     Route: 048
     Dates: start: 20070917, end: 20070924

REACTIONS (5)
  - CONVULSION [None]
  - LOWER RESPIRATORY TRACT INFECTION [None]
  - MALAISE [None]
  - SYNCOPE [None]
  - VOMITING [None]
